FAERS Safety Report 9803657 (Version 1)
Quarter: 2014Q1

REPORT INFORMATION
  Report Type: Spontaneous
  Country: US (occurrence: None)
  Receive Date: 20140107
  Receipt Date: 20140107
  Transmission Date: 20141002
  Serious: Yes (Hospitalization)
  Sender: FDA-Public Use
  Company Number: None

PATIENT
  Age: 60 Year
  Sex: Male
  Weight: 120.5 kg

DRUGS (1)
  1. DEXTROMETHORPHAN/GUAIFENESIN [Suspect]
     Dates: start: 20140104, end: 20140104

REACTIONS (3)
  - Confusional state [None]
  - Sedation [None]
  - Drug abuse [None]
